FAERS Safety Report 24681407 (Version 2)
Quarter: 2025Q1

REPORT INFORMATION
  Report Type: Spontaneous
  Country: JP (occurrence: JP)
  Receive Date: 20241129
  Receipt Date: 20250205
  Transmission Date: 20250409
  Serious: Yes (Death, Other)
  Sender: ROCHE
  Company Number: JP-CHUGAI-2024035398

PATIENT
  Age: 83 Year
  Sex: Male

DRUGS (3)
  1. TECENTRIQ [Suspect]
     Active Substance: ATEZOLIZUMAB
     Indication: Small cell lung cancer
     Dosage: 1200 MILLIGRAM, ONCE/3WEEKS
     Route: 040
     Dates: start: 20240911, end: 20240911
  2. ETOPOSIDE [Suspect]
     Active Substance: ETOPOSIDE
     Indication: Small cell lung cancer
     Dosage: 80 MG/M^2, THREE TIMES/THREE WEEKS
     Route: 040
     Dates: start: 20240911, end: 20240911
  3. CARBOPLATIN [Suspect]
     Active Substance: CARBOPLATIN
     Indication: Small cell lung cancer
     Dosage: 4 , ONCE/3WEEKS
     Route: 040
     Dates: start: 20240911, end: 20240911

REACTIONS (4)
  - Febrile neutropenia [Fatal]
  - Shock [Fatal]
  - Pseudomonas infection [Unknown]
  - Myelosuppression [Unknown]

NARRATIVE: CASE EVENT DATE: 20240919
